FAERS Safety Report 25430702 (Version 1)
Quarter: 2025Q2

REPORT INFORMATION
  Report Type: Spontaneous
  Country: US (occurrence: US)
  Receive Date: 20250612
  Receipt Date: 20250612
  Transmission Date: 20250716
  Serious: Yes (Other)
  Sender: PURDUE
  Company Number: US-PURDUE-USA-2025-0318035

PATIENT
  Age: 38 Year
  Sex: Female

DRUGS (1)
  1. DEXTROAMPHETAMINE SACCHARATE, AMPHETAMINE ASPARTATE, DEXTROAMPHETAMINE [Suspect]
     Active Substance: AMPHETAMINE ASPARTATE\AMPHETAMINE SULFATE\DEXTROAMPHETAMINE SACCHARATE\DEXTROAMPHETAMINE SULFATE
     Indication: Product used for unknown indication
     Route: 048

REACTIONS (14)
  - Loss of consciousness [Unknown]
  - Drug screen positive [Unknown]
  - Injury [Unknown]
  - Illness [Unknown]
  - Skin infection [Unknown]
  - Contusion [Unknown]
  - Swelling face [Unknown]
  - Abnormal behaviour [Unknown]
  - Aggression [Unknown]
  - Ocular hyperaemia [Unknown]
  - Dysarthria [Unknown]
  - Disorientation [Unknown]
  - Lethargy [Unknown]
  - Balance disorder [Unknown]

NARRATIVE: CASE EVENT DATE: 20221001
